FAERS Safety Report 17371406 (Version 1)
Quarter: 2020Q1

REPORT INFORMATION
  Report Type: Other
  Country: GB (occurrence: GB)
  Receive Date: 20200205
  Receipt Date: 20200205
  Transmission Date: 20200409
  Serious: Yes (Other)
  Sender: FDA-Public Use
  Company Number: GB-EMCURE PHARMACEUTICALS LTD-2018-EPL-0510

PATIENT
  Age: 17 Year
  Sex: Female
  Weight: 50 kg

DRUGS (2)
  1. SERTRALINE HYDROCHLORIDE. [Suspect]
     Active Substance: SERTRALINE HYDROCHLORIDE
     Dosage: 100 MILLIGRAM, DAILY
     Route: 048
     Dates: start: 20170712, end: 20170818
  2. SERTRALINE HYDROCHLORIDE. [Suspect]
     Active Substance: SERTRALINE HYDROCHLORIDE
     Indication: DEPRESSION
     Dosage: 50 MILLIGRAM
     Route: 048
     Dates: start: 20170512, end: 20170711

REACTIONS (12)
  - Yawning [Unknown]
  - Cycloplegia [Unknown]
  - Hypopituitarism [Unknown]
  - Headache [Unknown]
  - Glucocorticoid deficiency [Unknown]
  - Addison^s disease [Unknown]
  - Confusional state [Unknown]
  - Hemianopia heteronymous [Not Recovered/Not Resolved]
  - Alopecia [Unknown]
  - Tunnel vision [Not Recovered/Not Resolved]
  - Fatigue [Unknown]
  - Dry mouth [Unknown]

NARRATIVE: CASE EVENT DATE: 20170815
